FAERS Safety Report 4372560-0 (Version None)
Quarter: 2004Q2

REPORT INFORMATION
  Report Type: 
  Country: None (occurrence: None)
  Receive Date: 20040526
  Receipt Date: 20040514
  Transmission Date: 20050107
  Serious: No
  Sender: FDA-Public Use
  Company Number: RS004360-CDN

PATIENT
  Age: 68 Year
  Sex: Female
  Weight: 77.1115 kg

DRUGS (4)
  1. RABEPRAZOLE SODIUM [Suspect]
     Dosage: ORAL
     Route: 048
     Dates: start: 20040226, end: 20040109
  2. METOPROLOL (METOPROLOL) [Concomitant]
  3. ALDACTONE [Concomitant]
  4. ENALAPRIL MALEATE [Concomitant]

REACTIONS (5)
  - BLOOD CREATININE INCREASED [None]
  - BLOOD UREA INCREASED [None]
  - DIARRHOEA [None]
  - DIZZINESS [None]
  - VOMITING [None]
